FAERS Safety Report 21139432 (Version 1)
Quarter: 2022Q3

REPORT INFORMATION
  Report Type: Spontaneous
  Country: ES (occurrence: ES)
  Receive Date: 20220727
  Receipt Date: 20220727
  Transmission Date: 20221026
  Serious: Yes (Hospitalization, Other)
  Sender: FDA-Public Use
  Company Number: None

PATIENT
  Age: 66 Year
  Sex: Female

DRUGS (10)
  1. ZOLEDRONIC ACID [Suspect]
     Active Substance: ZOLEDRONIC ACID
     Indication: Osteoporosis
     Dosage: 5.0 MG?INTRAVENOUS USE
     Route: 042
     Dates: start: 20220602
  2. HYDROCHLOROTHIAZIDE\IRBESARTAN [Concomitant]
     Active Substance: HYDROCHLOROTHIAZIDE\IRBESARTAN
     Indication: Essential hypertension
     Dosage: 300.0 MG BREAKFAST?300 MG/12.5 MG FILM-COATED TABLETS, 28 TABLETS
     Route: 048
     Dates: start: 20081105
  3. BISOPROLOL FUMARATE [Concomitant]
     Active Substance: BISOPROLOL FUMARATE
     Indication: Tobacco abuse
     Dosage: 2.5 MG BREAKFAST?2.5 MG TABLETS EFG, 28 TABLETS (PVC/PVDC-ALUMINUM BLISTER)
     Route: 048
     Dates: start: 20220507
  4. OMEPRAZOLE MABO [Concomitant]
     Indication: Duodenitis
     Dosage: 40.0 MG BEFORE BREAKFAST AND DINNER?40 MG, 56 CAPSULES (BOTTLE)
     Route: 048
     Dates: start: 20190701
  5. ACETAMINOPHEN\TRAMADOL HYDROCHLORIDE [Concomitant]
     Active Substance: ACETAMINOPHEN\TRAMADOL HYDROCHLORIDE
     Indication: Pain
     Dosage: 1.0 TABLET AFTER LUNCH AND DINNER?75 MG/650 MG TABLETS, 60 TABLETS (BLISTERS)
     Route: 048
     Dates: start: 20220602
  6. FOSFOMYCIN SODIUM [Concomitant]
     Active Substance: FOSFOMYCIN SODIUM
     Indication: Dysuria
     Dosage: 500.0 MG EVERY 8 HOURS?500 MG HARD CAPSULES, 24 CAPSULES
     Route: 048
     Dates: start: 20220611
  7. NOLOTIL [Concomitant]
     Indication: Pain
     Dosage: 575.0 MG EVERY 8 HOURS?575 MG HARD CAPSULES, 20 CAPSULES
     Route: 048
     Dates: start: 20220611
  8. ATORVASTATIN CALCIUM\EZETIMIBE [Concomitant]
     Active Substance: ATORVASTATIN CALCIUM\EZETIMIBE
     Indication: Hyperlipidaemia
     Dosage: 1.0 TABLET EVERY 24 HOURS?10 MG/40 MG FILM-COATED TABLETS, 30 TABLETS
     Route: 048
     Dates: start: 20170602
  9. METFORMIN\SITAGLIPTIN [Concomitant]
     Active Substance: METFORMIN\SITAGLIPTIN
     Indication: Type 2 diabetes mellitus
     Dosage: 1.0 TABLET AFTER DINNER?50 MG/1000 MG FILM-COATED TABLETS, 56 TABLETS
     Route: 048
     Dates: start: 20211215
  10. PARACETAMOL CINFA [Concomitant]
     Indication: Pain
     Dosage: 1.0 G EVERY 8 HOURS?1 G TABLETS EFG, 40 TABLETS
     Route: 048
     Dates: start: 20220602

REACTIONS (1)
  - Renal tubular necrosis [Recovering/Resolving]

NARRATIVE: CASE EVENT DATE: 20220613
